FAERS Safety Report 8433311-3 (Version None)
Quarter: 2012Q2

REPORT INFORMATION
  Report Type: 
  Country: None (occurrence: None)
  Receive Date: 20120607
  Receipt Date: 20120523
  Transmission Date: 20120825
  Serious: Yes (Death, Other)
  Sender: FDA-Public Use
  Company Number: 2012TR0166

PATIENT
  Age: 10 Month
  Sex: Male

DRUGS (1)
  1. ORFADIN [Suspect]
     Indication: TYROSINAEMIA
     Dosage: 0.6 MG/KG
     Dates: start: 20110527

REACTIONS (3)
  - PNEUMONIA [None]
  - NERVOUS SYSTEM DISORDER [None]
  - SEPSIS [None]
